FAERS Safety Report 6232144-6 (Version None)
Quarter: 2009Q2

REPORT INFORMATION
  Report Type: 
  Country: None (occurrence: None)
  Receive Date: 20090617
  Receipt Date: 20070809
  Transmission Date: 20091009
  Serious: Yes (Hospitalization, Other)
  Sender: FDA-Public Use
  Company Number: US-ASTRAZENECA-2006UW11328

PATIENT
  Age: 469 Month
  Sex: Female
  Weight: 67.1 kg

DRUGS (16)
  1. SEROQUEL [Suspect]
     Indication: BIPOLAR DISORDER
     Route: 048
     Dates: start: 20040407
  2. SEROQUEL [Suspect]
     Indication: INSOMNIA
     Route: 048
     Dates: start: 20040407
  3. SEROQUEL [Suspect]
     Indication: DEPRESSION
     Route: 048
     Dates: start: 20040407
  4. SEROQUEL [Suspect]
     Route: 048
     Dates: start: 20040501, end: 20060101
  5. SEROQUEL [Suspect]
     Route: 048
     Dates: start: 20040501, end: 20060101
  6. SEROQUEL [Suspect]
     Route: 048
     Dates: start: 20040501, end: 20060101
  7. SEROQUEL [Suspect]
     Route: 048
     Dates: start: 20050709
  8. SEROQUEL [Suspect]
     Route: 048
     Dates: start: 20050709
  9. SEROQUEL [Suspect]
     Route: 048
     Dates: start: 20050709
  10. ABILIFY [Concomitant]
     Dates: start: 20060101
  11. ZYPREXA [Concomitant]
     Dates: start: 20040101, end: 20060101
  12. METHADONE [Concomitant]
     Dates: start: 20070501
  13. AVANDAMET [Concomitant]
     Dosage: 2/500 TWO TIMES A DAY
     Dates: start: 20050824
  14. GLYBURIDE [Concomitant]
     Dates: start: 20050823
  15. SYMBYAX [Concomitant]
     Dosage: 6/2.5 MG DAILY
     Route: 048
     Dates: start: 20050824
  16. PHENERGAN [Concomitant]
     Dosage: 12.5 TO 25 MG
     Route: 042
     Dates: start: 20050509

REACTIONS (10)
  - DIABETES MELLITUS [None]
  - HYPERGLYCAEMIA [None]
  - HYPOGLYCAEMIA [None]
  - NEUROLEPTIC MALIGNANT SYNDROME [None]
  - PANCREATIC PSEUDOCYST [None]
  - PANCREATITIS [None]
  - PANCREATITIS ACUTE [None]
  - PANCREATITIS CHRONIC [None]
  - TYPE 1 DIABETES MELLITUS [None]
  - TYPE 2 DIABETES MELLITUS [None]
